FAERS Safety Report 4763671-6 (Version None)
Quarter: 2005Q3

REPORT INFORMATION
  Report Type: 
  Country: None (occurrence: None)
  Receive Date: 20050908
  Receipt Date: 20050419
  Transmission Date: 20060218
  Serious: Yes (Other)
  Sender: FDA-Public Use
  Company Number: PHEH2005US04562

PATIENT
  Age: 10 Year
  Sex: Male

DRUGS (2)
  1. TRILEPTAL [Suspect]
     Indication: SIMPLE PARTIAL SEIZURES
     Dates: start: 20050201
  2. KEPPRA [Suspect]

REACTIONS (3)
  - ANAL FISSURE [None]
  - HAEMATOCHEZIA [None]
  - RECTAL HAEMORRHAGE [None]
